FAERS Safety Report 5459847-5 (Version None)
Quarter: 2007Q3

REPORT INFORMATION
  Report Type: 
  Country: None (occurrence: None)
  Receive Date: 20070810
  Receipt Date: 20070515
  Transmission Date: 20080115
  Serious: Yes (Other)
  Sender: FDA-Public Use
  Company Number: 200711186BWH

PATIENT
  Age: 65 Year
  Sex: Male
  Weight: 71 kg

DRUGS (4)
  1. TRASYLOL [Suspect]
     Indication: ANEURYSM REPAIR
     Dosage: 200 MG ONCE INTRAVENOUS,250 ML, ONCE INTRAVENOUS
     Route: 042
     Dates: start: 20070328
  2. PROTAMINE SULFATE [Concomitant]
  3. FRESH FROZEN PLASMA [Concomitant]
  4. HEPARIN [Concomitant]

REACTIONS (2)
  - MYOCARDIAL INFARCTION [None]
  - STENT OCCLUSION [None]
